FAERS Safety Report 7700220-4 (Version None)
Quarter: 2011Q3

REPORT INFORMATION
  Report Type: 
  Country: None (occurrence: None)
  Receive Date: 20110816
  Receipt Date: 20110802
  Transmission Date: 20111222
  Serious: Yes (Disabling)
  Sender: FDA-Public Use
  Company Number: UTC-009078

PATIENT
  Age: 43 Year
  Sex: Male
  Weight: 70 kg

DRUGS (5)
  1. TYVASO (6 MICROGRAM, AEROSOL FOR INHALATION) (TREPROSTINIL SODIUM) [Suspect]
     Indication: PULMONARY ARTERIAL HYPERTENSION
     Dosage: 216, 288 MCG (54, 72 MCG, 4 IN 1 D), INHALATION
     Route: 055
     Dates: start: 20100915
  2. TYVASO (6 MICROGRAM, AEROSOL FOR INHALATION) (TREPROSTINIL SODIUM) [Suspect]
     Indication: PULMONARY ARTERIAL HYPERTENSION
     Dosage: 216, 288 MCG (54, 72 MCG, 4 IN 1 D), INHALATION
     Route: 055
     Dates: start: 20110602, end: 20110705
  3. TYVASO (6 MICROGRAM, AEROSOL FOR INHALATION) (TREPROSTINIL SODIUM) [Suspect]
     Indication: PULMONARY ARTERIAL HYPERTENSION
     Dosage: 216, 288 MCG (54, 72 MCG, 4 IN 1 D), INHALATION
     Route: 055
     Dates: start: 20110602, end: 20110705
  4. TRACLEER [Concomitant]
  5. ADCIRCA [Concomitant]

REACTIONS (7)
  - BLOOD CREATININE DECREASED [None]
  - PLATELET COUNT DECREASED [None]
  - RECTAL DISCHARGE [None]
  - RED BLOOD CELL COUNT DECREASED [None]
  - HAEMOGLOBIN DECREASED [None]
  - FLATULENCE [None]
  - HAEMATOCRIT DECREASED [None]
